FAERS Safety Report 6516964-6 (Version None)
Quarter: 2009Q4

REPORT INFORMATION
  Report Type: 
  Country: None (occurrence: None)
  Receive Date: 20091223
  Receipt Date: 20091215
  Transmission Date: 20100525
  Serious: Yes (Death)
  Sender: FDA-Public Use
  Company Number: US-MILLENNIUM PHARMACEUTICALS, INC.-2009-05191

PATIENT
  Sex: Male
  Weight: 82.54 kg

DRUGS (13)
  1. VELCADE [Suspect]
     Indication: AMYLOIDOSIS
     Dosage: 1.3 MG/M2, CYCLIC
     Route: 042
     Dates: start: 20091021, end: 20091209
  2. MELPHALAN [Suspect]
     Indication: AMYLOIDOSIS
     Dosage: 9 MG/M2, CYCLIC
     Route: 048
     Dates: start: 20091021, end: 20091205
  3. DEXAMETHASONE TAB [Suspect]
     Indication: AMYLOIDOSIS
     Dosage: 10 MG, CYCLIC
     Dates: start: 20091021, end: 20091209
  4. LASIX [Concomitant]
     Indication: WEIGHT INCREASED
     Dosage: 80 MG, UNK
     Dates: start: 20091023
  5. LASIX [Concomitant]
     Dosage: 40 MG, UNK
     Dates: start: 20091023
  6. LASIX [Concomitant]
     Dosage: UNK
     Route: 042
     Dates: start: 20091202
  7. ACYCLOVIR [Concomitant]
     Indication: INFECTION PROPHYLAXIS
     Dosage: 400 MG, TID
     Dates: start: 20091021
  8. PRILOSEC [Concomitant]
     Indication: PROPHYLAXIS
     Dosage: 20 MG, QD
     Dates: start: 20091021
  9. ATARAX [Concomitant]
     Indication: PRURITUS
     Dosage: 25 MG, Q6HR
     Dates: start: 20091125
  10. BACTRIM [Concomitant]
     Indication: RASH
     Dosage: UNK
     Dates: start: 20091202
  11. BENADRYL [Concomitant]
     Indication: RASH
     Dosage: UNK
     Dates: start: 20091202
  12. POTASSIUM [Concomitant]
     Indication: HYPOKALAEMIA
     Dosage: 20 MEQ, QD
     Dates: start: 20091202
  13. POTASSIUM [Concomitant]
     Dosage: UNK
     Route: 042
     Dates: start: 20091202, end: 20091202

REACTIONS (1)
  - DEATH [None]
